FAERS Safety Report 21604667 (Version 1)
Quarter: 2022Q4

REPORT INFORMATION
  Report Type: Report from Study
  Country: DE (occurrence: DE)
  Receive Date: 20221116
  Receipt Date: 20221116
  Transmission Date: 20230112
  Serious: Yes (Hospitalization, Other)
  Sender: FDA-Public Use
  Company Number: DE-EMA-DD-20221027-5861859-081931

PATIENT
  Sex: Female

DRUGS (9)
  1. METHOTREXATE [Suspect]
     Active Substance: METHOTREXATE
     Indication: Rheumatoid arthritis
     Dosage: 3.7 MG, THERAPY END DATE : ASKU
     Dates: start: 20180423
  2. METHOTREXATE [Suspect]
     Active Substance: METHOTREXATE
     Dosage: 7.5 MG, THERAPY END DATE : ASKU
     Dates: start: 20170601
  3. METHOTREXATE [Suspect]
     Active Substance: METHOTREXATE
     Dosage: 7.5 MG, THERAPY END DATE : ASKU
     Dates: start: 20171025
  4. METHOTREXATE [Suspect]
     Active Substance: METHOTREXATE
     Dosage: 3.7 MG, THERAPY END DATE : ASKU
     Dates: start: 20181203
  5. METHOTREXATE [Suspect]
     Active Substance: METHOTREXATE
     Dosage: UNK, THERAPY END DATE : ASKU
     Dates: start: 20190408
  6. METHOTREXATE [Suspect]
     Active Substance: METHOTREXATE
     Dosage: 7.5 MG, THERAPY END DATE : ASKU
     Dates: start: 20161104
  7. TOCILIZUMAB [Suspect]
     Active Substance: TOCILIZUMAB
     Indication: Rheumatoid arthritis
     Dosage: 162 MG, DURATION : 2 MONTHS
     Dates: start: 201901, end: 201903
  8. HYDROXYCHLOROQUINE [Suspect]
     Active Substance: HYDROXYCHLOROQUINE
     Indication: Rheumatoid arthritis
     Dosage: 200 MG, THERAPY END DATE : ASKU
     Dates: start: 20190408
  9. HYDROXYCHLOROQUINE [Suspect]
     Active Substance: HYDROXYCHLOROQUINE
     Dosage: UNK, THERAPY END DATE : ASKU
     Dates: start: 20191227

REACTIONS (4)
  - Aortic aneurysm [Recovered/Resolved]
  - Polyneuropathy [Unknown]
  - Gastroenteritis [Recovered/Resolved]
  - Cystitis [Unknown]

NARRATIVE: CASE EVENT DATE: 20170315
